FAERS Safety Report 16959668 (Version 1)
Quarter: 2019Q4

REPORT INFORMATION
  Report Type: Spontaneous
  Country: GB (occurrence: GB)
  Receive Date: 20191025
  Receipt Date: 20191025
  Transmission Date: 20200122
  Serious: Yes (Other)
  Sender: FDA-Public Use
  Company Number: GB-MICRO LABS LIMITED-ML2019-02888

PATIENT
  Age: 72 Year
  Sex: Female
  Weight: 92 kg

DRUGS (9)
  1. ESOMEPRAZOLE. [Concomitant]
     Active Substance: ESOMEPRAZOLE MAGNESIUM
     Dosage: TAKE ONE OR TWO DAILY
     Dates: start: 20161117
  2. BENDROFLUMETHIAZIDE [Concomitant]
     Active Substance: BENDROFLUMETHIAZIDE
     Dates: start: 20161117
  3. MORPHINE SULFATE. [Concomitant]
     Active Substance: MORPHINE SULFATE
     Dosage: TAKE 5 TO10 MLS EVERY 4-6 HOURS
     Dates: start: 20190830
  4. PREDNISOLONE. [Concomitant]
     Active Substance: PREDNISOLONE
     Dosage: TAKE ALL AT THE SAME TIME FOR FLARE UP...
     Dates: start: 20190830
  5. ATORVASTATIN [Concomitant]
     Active Substance: ATORVASTATIN
     Dates: start: 20161117
  6. CYCLIZINE [Concomitant]
     Active Substance: CYCLIZINE
     Dosage: TO BE TAKEN THREE TIMES DAILY
     Dates: start: 20190830
  7. FLUTICASONE. [Concomitant]
     Active Substance: FLUTICASONE
     Dates: start: 20161117
  8. AMOXICILLIN/CLAVULANIC ACID [Suspect]
     Active Substance: AMOXICILLIN\CLAVULANIC ACID
     Dosage: 500MG/125MG
     Dates: start: 20190829
  9. COLCHICINE. [Concomitant]
     Active Substance: COLCHICINE
     Dates: start: 20190808, end: 20190814

REACTIONS (1)
  - Arthralgia [Recovering/Resolving]

NARRATIVE: CASE EVENT DATE: 20190830
